FAERS Safety Report 6897296-3 (Version None)
Quarter: 2010Q3

REPORT INFORMATION
  Report Type: 
  Country: None (occurrence: None)
  Receive Date: 20100802
  Receipt Date: 20070502
  Transmission Date: 20110219
  Serious: No
  Sender: FDA-Public Use
  Company Number: US-PFIZER INC-2007036111

PATIENT
  Sex: Male
  Weight: 88.5 kg

DRUGS (5)
  1. LYRICA [Suspect]
     Indication: POST HERPETIC NEURALGIA
     Dates: start: 20060401, end: 20061001
  2. NORVASC [Concomitant]
  3. VALSARTAN [Concomitant]
  4. TAMSULOSIN HYDROCHLORIDE [Concomitant]
  5. WARFARIN SODIUM [Concomitant]

REACTIONS (2)
  - DIZZINESS [None]
  - FALL [None]
